FAERS Safety Report 17251290 (Version 1)
Quarter: 2020Q1

REPORT INFORMATION
  Report Type: Spontaneous
  Country: GB (occurrence: GB)
  Receive Date: 20200109
  Receipt Date: 20200109
  Transmission Date: 20200409
  Serious: Yes (Other)
  Sender: FDA-Public Use
  Company Number: GB-TEVA-2020-GB-1163891

PATIENT
  Age: 1 Year
  Sex: Male
  Weight: 10 kg

DRUGS (6)
  1. DIFFLAM [Concomitant]
     Active Substance: BENZYDAMINE HYDROCHLORIDE
     Dosage: PUFFS. 2 DOSAGE FORMS
     Dates: start: 20191205
  2. PHENOXYMETHYLPENICILLIN [Suspect]
     Active Substance: PENICILLIN V
     Dosage: 250MG/5ML ORAL SOLUTION
     Route: 048
     Dates: start: 20191204
  3. MONTELUKAST [Concomitant]
     Active Substance: MONTELUKAST SODIUM
     Dosage: SACHET EACH NIGHT 1 DOSAGE FORMS
     Dates: start: 20191018, end: 20191115
  4. ERYTHROMYCIN ETHYLSUCCINATE. [Concomitant]
     Active Substance: ERYTHROMYCIN ETHYLSUCCINATE
     Dosage: 20 ML
     Dates: start: 20191205
  5. MOVICOL [Concomitant]
     Active Substance: POLYETHYLENE GLYCOL 3350\POTASSIUM CHLORIDE\SODIUM BICARBONATE\SODIUM CHLORIDE
     Dosage: AS DIRECTED
     Dates: start: 20191018, end: 20191019
  6. PREDNISOLONE. [Concomitant]
     Active Substance: PREDNISOLONE
     Dosage: SINGLE DOSE. 2 DOSAGE FORMS
     Dates: start: 20190910, end: 20190911

REACTIONS (2)
  - Eye swelling [Recovering/Resolving]
  - Rash [Recovering/Resolving]

NARRATIVE: CASE EVENT DATE: 20191205
